FAERS Safety Report 18126036 (Version 1)
Quarter: 2020Q3

REPORT INFORMATION
  Report Type: Spontaneous
  Country: JP (occurrence: JP)
  Receive Date: 20200808
  Receipt Date: 20200808
  Transmission Date: 20201103
  Serious: Yes (Congenital Anomaly)
  Sender: FDA-Public Use
  Company Number: JP-QUAGEN-2020QUALIT00059

PATIENT
  Sex: Male
  Weight: 2.82 kg

DRUGS (4)
  1. LEVOTHYROXINE. [Suspect]
     Active Substance: LEVOTHYROXINE
     Indication: FOETAL EXPOSURE DURING PREGNANCY
     Dosage: DURING PREGNANCY TILL THE DELIVERY
     Route: 064
  2. PROPYLTHIOURACIL TABLETS USP [Suspect]
     Active Substance: PROPYLTHIOURACIL
     Indication: FOETAL EXPOSURE DURING PREGNANCY
     Dosage: FROM START OF THE PREGNANCY TILL THE DELIVERY
     Route: 064
  3. POTASSIUM IODIDE. [Suspect]
     Active Substance: POTASSIUM IODIDE
     Indication: FOETAL EXPOSURE DURING PREGNANCY
     Dosage: DURING PREGNANCY
     Route: 064
  4. THIAMAZOLE [Interacting]
     Active Substance: METHIMAZOLE
     Indication: GOITRE
     Route: 065

REACTIONS (6)
  - Foetal growth restriction [Unknown]
  - Goitre congenital [Not Recovered/Not Resolved]
  - Congenital anomaly [Unknown]
  - Jaundice neonatal [Unknown]
  - Premature baby [None]
  - Hypothyroidism [Unknown]
